FAERS Safety Report 9520398 (Version 2)
Quarter: 2013Q3

REPORT INFORMATION
  Report Type: Report from Study
  Country: US (occurrence: US)
  Receive Date: 20130912
  Receipt Date: 20130912
  Transmission Date: 20140515
  Serious: Yes (Other)
  Sender: FDA-Public Use
  Company Number: US-ROCHE-1267472

PATIENT
  Age: 61 Year
  Sex: Female
  Weight: 41.31 kg

DRUGS (10)
  1. ACTEMRA [Suspect]
     Indication: RHEUMATOID ARTHRITIS
     Route: 042
     Dates: start: 20130729, end: 20130729
  2. PREDNISONE [Concomitant]
     Indication: RHEUMATOID ARTHRITIS
     Route: 048
  3. LEVOTHYROXINE [Concomitant]
     Route: 048
  4. AMBIEN [Concomitant]
     Indication: INSOMNIA
     Route: 048
  5. CYTOMEL [Concomitant]
     Route: 048
  6. SERTRALINE [Concomitant]
     Indication: DEPRESSION
     Route: 048
  7. ALEVE [Concomitant]
     Route: 048
  8. VITAMIN D3 [Concomitant]
     Indication: VITAMIN D DEFICIENCY
  9. ACETAMINOPHEN/CODEINE [Concomitant]
     Dosage: 300/60, PM
     Route: 048
  10. CALCIUM 600 + D PRODUCT NOS [Concomitant]
     Route: 065

REACTIONS (2)
  - Eye swelling [Recovered/Resolved]
  - Therapeutic response decreased [Unknown]
